FAERS Safety Report 5422999-7 (Version None)
Quarter: 2007Q3

REPORT INFORMATION
  Report Type: 
  Country: None (occurrence: None)
  Receive Date: 20070820
  Receipt Date: 20070806
  Transmission Date: 20080115
  Serious: Yes (Hospitalization)
  Sender: FDA-Public Use
  Company Number: 230003K07CHE

PATIENT
  Age: 41 Year
  Sex: Male

DRUGS (2)
  1. REBIF [Suspect]
     Indication: MULTIPLE SCLEROSIS
     Dosage: 20 %, 3 IN 1 WEEKS, SUBCUTANEOUS
     Route: 058
     Dates: start: 20070518, end: 20070528
  2. ANTIEPILEPTICS [Concomitant]

REACTIONS (3)
  - CONDITION AGGRAVATED [None]
  - DIARRHOEA [None]
  - EPILEPSY [None]
